FAERS Safety Report 7443587-7 (Version None)
Quarter: 2011Q2

REPORT INFORMATION
  Report Type: 
  Country: None (occurrence: None)
  Receive Date: 20110428
  Receipt Date: 20110105
  Transmission Date: 20111010
  Serious: Yes (Other)
  Sender: FDA-Public Use
  Company Number: PHHY2010JP51740

PATIENT
  Sex: Male
  Weight: 64 kg

DRUGS (4)
  1. ASPARA-CA [Concomitant]
     Dosage: 1200 MG, UNK
     Dates: start: 20041216
  2. GLEEVEC [Suspect]
     Dosage: 500 MG/DAY
     Route: 048
     Dates: start: 20010719, end: 20030925
  3. GLEEVEC [Suspect]
     Indication: CHRONIC MYELOID LEUKAEMIA
     Dosage: 400 MG/DAY
     Route: 048
     Dates: start: 20010426, end: 20010718
  4. GLEEVEC [Suspect]
     Dosage: 400 MG/DAY
     Route: 048
     Dates: start: 20040325, end: 20100128

REACTIONS (3)
  - PLATELET ADHESIVENESS DECREASED [None]
  - CONJUNCTIVAL HAEMORRHAGE [None]
  - PALPITATIONS [None]
